FAERS Safety Report 14332037 (Version 3)
Quarter: 2018Q1

REPORT INFORMATION
  Report Type: Report from Study
  Country: CO (occurrence: CO)
  Receive Date: 20171228
  Receipt Date: 20180202
  Transmission Date: 20180509
  Serious: Yes (Hospitalization, Other)
  Sender: FDA-Public Use
  Company Number: CO-BAYER-2017-088064

PATIENT
  Age: 78 Year
  Sex: Female
  Weight: 40 kg

DRUGS (15)
  1. NEXAVAR [Suspect]
     Active Substance: SORAFENIB
     Indication: HEPATOCELLULAR CARCINOMA
     Dosage: UNK
     Dates: start: 201612, end: 20161225
  2. URSACOL [Concomitant]
     Active Substance: URSODIOL
  3. ENTEROGERMINA [Concomitant]
     Active Substance: BACILLUS SUBTILIS
  4. FOLIC ACID. [Concomitant]
     Active Substance: FOLIC ACID
  5. OMEPRAZOLE. [Concomitant]
     Active Substance: OMEPRAZOLE
  6. THIAMINE. [Concomitant]
     Active Substance: THIAMINE
  7. RIFAXIMIN. [Concomitant]
     Active Substance: RIFAXIMIN
  8. ESOMEPRAZOLE [Concomitant]
     Active Substance: ESOMEPRAZOLE
  9. LEVOTHYROXINE. [Concomitant]
     Active Substance: LEVOTHYROXINE
     Dosage: DAILY DOSE 100 MG
  10. NEXAVAR [Suspect]
     Active Substance: SORAFENIB
     Indication: HEPATOCELLULAR CARCINOMA
     Dosage: 400 MG, BID
     Route: 048
     Dates: start: 20150415
  11. NEXAVAR [Suspect]
     Active Substance: SORAFENIB
     Indication: HEPATOCELLULAR CARCINOMA
     Dosage: 800 MG, PER DAY
     Dates: start: 20170102, end: 20171206
  12. URSOLIC ACID [Concomitant]
     Active Substance: DIETARY SUPPLEMENT
  13. ERYTHROPOIETIN [Concomitant]
     Active Substance: ERYTHROPOIETIN
     Indication: HAEMOGLOBIN DECREASED
     Dosage: 1 DF, BIW
  14. SODIUM ALGINATE W/SODIUM BICARBONATE [Concomitant]
     Active Substance: SODIUM ALGINATE\SODIUM BICARBONATE
  15. RIFAMYCIN [Concomitant]
     Active Substance: RIFAMYCIN

REACTIONS (30)
  - Haemoglobin decreased [Not Recovered/Not Resolved]
  - Diarrhoea [Recovered/Resolved]
  - Pyrexia [Not Recovered/Not Resolved]
  - Alpha 1 foetoprotein increased [Not Recovered/Not Resolved]
  - Pyrexia [Recovered/Resolved]
  - Laceration [Not Recovered/Not Resolved]
  - Hepatocellular carcinoma [Not Recovered/Not Resolved]
  - Platelet count decreased [Not Recovered/Not Resolved]
  - Weight decreased [Not Recovered/Not Resolved]
  - Skin haemorrhage [Not Recovered/Not Resolved]
  - Electrolyte imbalance [Recovered/Resolved]
  - Rash [Recovered/Resolved]
  - Dry skin [Not Recovered/Not Resolved]
  - Pruritus generalised [Not Recovered/Not Resolved]
  - Diarrhoea [Not Recovered/Not Resolved]
  - Pain of skin [Not Recovered/Not Resolved]
  - Pyrexia [Recovered/Resolved]
  - Ascites [Recovered/Resolved]
  - Hepatic encephalopathy [Not Recovered/Not Resolved]
  - Ascites [Recovered/Resolved]
  - Scratch [Not Recovered/Not Resolved]
  - Decreased appetite [Not Recovered/Not Resolved]
  - Rash [Not Recovered/Not Resolved]
  - Haemoglobin decreased [Not Recovered/Not Resolved]
  - Blood calcium decreased [Not Recovered/Not Resolved]
  - Aggression [None]
  - Loss of consciousness [None]
  - Weight increased [Not Recovered/Not Resolved]
  - Leukopenia [Unknown]
  - Blister [Not Recovered/Not Resolved]

NARRATIVE: CASE EVENT DATE: 201704
